FAERS Safety Report 5671899-6 (Version None)
Quarter: 2008Q1

REPORT INFORMATION
  Report Type: 
  Country: None (occurrence: None)
  Receive Date: 20080317
  Receipt Date: 20080317
  Transmission Date: 20080703
  Serious: Yes (Other)
  Sender: FDA-Public Use
  Company Number: None

PATIENT
  Age: 48 Year
  Sex: Male
  Weight: 84.8226 kg

DRUGS (1)
  1. CREST PRO-HEALTH ORAL RINSE [Suspect]
     Indication: DENTAL DISORDER PROPHYLAXIS
     Dosage: 20ML 2X DAILY DENTAL
     Route: 004
     Dates: start: 20070601, end: 20080313

REACTIONS (1)
  - TOOTH DISCOLOURATION [None]
